FAERS Safety Report 6982314-4 (Version None)
Quarter: 2010Q3

REPORT INFORMATION
  Report Type: 
  Country: None (occurrence: None)
  Receive Date: 20100914
  Receipt Date: 20091223
  Transmission Date: 20110219
  Serious: No
  Sender: FDA-Public Use
  Company Number: US-PFIZER INC-2009309001

PATIENT
  Sex: Male
  Weight: 77 kg

DRUGS (1)
  1. LYRICA [Suspect]
     Indication: BACK PAIN
     Dosage: 50 MG, 2X/DAY
     Dates: start: 20091117, end: 20091123

REACTIONS (4)
  - GINGIVAL BLEEDING [None]
  - GINGIVAL PAIN [None]
  - GINGIVAL SWELLING [None]
  - MASTICATION DISORDER [None]
